FAERS Safety Report 20013193 (Version 6)
Quarter: 2022Q2

REPORT INFORMATION
  Report Type: Other
  Country: NL (occurrence: None)
  Receive Date: 20211029
  Receipt Date: 20220404
  Transmission Date: 20220721
  Serious: Yes (Hospitalization)
  Sender: FDA-Public Use
  Company Number: NL-ROCHE-2944784

PATIENT
  Age: 60 Year
  Sex: Male
  Weight: 77 kg

DRUGS (9)
  1. OCRELIZUMAB [Suspect]
     Active Substance: OCRELIZUMAB
     Indication: Primary progressive multiple sclerosis
     Dosage: 15/OCT/2021, MOST RECENT DOSE (600 MG)
     Route: 042
     Dates: start: 20190107
  2. PREDNISOLONE [Concomitant]
     Active Substance: PREDNISOLONE
     Dosage: ONCE BEFORE INFUSION
     Route: 042
     Dates: start: 20211015, end: 20211015
  3. CLEMASTINE FUMARATE [Concomitant]
     Active Substance: CLEMASTINE FUMARATE
     Dosage: ONCE BEFORE INFUSION
     Route: 042
     Dates: start: 20211015, end: 20211015
  4. CHOLECALCIFEROL [Concomitant]
     Active Substance: CHOLECALCIFEROL
     Dosage: MS SYMPTOMATIC TREATMENTS
     Route: 048
     Dates: start: 20170508
  5. MOVICOLON [Concomitant]
     Active Substance: POLYETHYLENE GLYCOL 3350\POTASSIUM CHLORIDE\SODIUM BICARBONATE\SODIUM CHLORIDE
     Dosage: MS SYMPTOMATIC TREATMENTS
     Route: 048
     Dates: start: 20180626
  6. TAMSULOSIN HYDROCHLORIDE [Concomitant]
     Active Substance: TAMSULOSIN HYDROCHLORIDE
     Dosage: MS SYMPTOMATIC TREATMENTS
     Route: 048
     Dates: start: 20180626
  7. SOLIFENACIN [Concomitant]
     Active Substance: SOLIFENACIN
     Dosage: MS SYMPTOMATIC TREATMENTS
     Route: 048
     Dates: start: 20200331
  8. DALFAMPRIDINE [Concomitant]
     Active Substance: DALFAMPRIDINE
     Dosage: MS SYMPTOMATIC TREATMENTS
     Route: 048
     Dates: start: 20210308
  9. NADROPARIN CALCIUM [Concomitant]
     Active Substance: NADROPARIN CALCIUM
     Indication: Prophylaxis
     Dosage: 2851 IU
     Route: 058
     Dates: start: 20211025, end: 20211026

REACTIONS (1)
  - COVID-19 [Recovered/Resolved]

NARRATIVE: CASE EVENT DATE: 20211016
